FAERS Safety Report 7610408-9 (Version None)
Quarter: 2011Q3

REPORT INFORMATION
  Report Type: 
  Country: None (occurrence: None)
  Receive Date: 20110715
  Receipt Date: 20110713
  Transmission Date: 20111222
  Serious: No
  Sender: FDA-Public Use
  Company Number: US-PFIZER INC-2011159754

PATIENT
  Sex: Female
  Weight: 52.15 kg

DRUGS (3)
  1. ZOLOFT [Suspect]
     Indication: DEPRESSION
     Dosage: 200 MG, DAILY
     Route: 048
     Dates: start: 20110101
  2. ZOLOFT [Suspect]
     Indication: ANXIETY DISORDER
  3. VISTARIL [Suspect]
     Indication: PANIC ATTACK
     Dosage: 25 MG, AS NEEDED
     Route: 048
     Dates: start: 20110601

REACTIONS (1)
  - DRUG SCREEN POSITIVE [None]
